FAERS Safety Report 5958173-5 (Version None)
Quarter: 2008Q4

REPORT INFORMATION
  Report Type: 
  Country: None (occurrence: None)
  Receive Date: 20081119
  Receipt Date: 20081106
  Transmission Date: 20090506
  Serious: Yes (Hospitalization)
  Sender: FDA-Public Use
  Company Number: FR-GENENTECH-271055

PATIENT
  Sex: Female

DRUGS (6)
  1. XOLAIR [Suspect]
     Indication: ASTHMA
     Dosage: UNK
     Dates: start: 20070101
  2. XOLAIR [Suspect]
     Dosage: UNK
     Route: 030
     Dates: start: 20080801, end: 20080901
  3. SOLUPRED [Concomitant]
     Indication: DRUG USE FOR UNKNOWN INDICATION
     Dosage: UNK
  4. ETHINYL ESTRADIOL TAB [Concomitant]
     Indication: DRUG USE FOR UNKNOWN INDICATION
  5. CORTICOSTEROID (UNK INGREDIENTS) [Concomitant]
     Indication: ASTHMA
  6. GESTODENE [Concomitant]
     Indication: DRUG USE FOR UNKNOWN INDICATION

REACTIONS (2)
  - CEREBRAL VENOUS THROMBOSIS [None]
  - SUBARACHNOID HAEMORRHAGE [None]
